APPROVED DRUG PRODUCT: LODINE XL
Active Ingredient: ETODOLAC
Strength: 500MG **Federal Register determination that product was not discontinued or withdrawn for safety or effectiveness reasons**
Dosage Form/Route: TABLET, EXTENDED RELEASE;ORAL
Application: N020584 | Product #003
Applicant: WYETH PHARMACEUTICALS INC
Approved: Jan 20, 1998 | RLD: No | RS: No | Type: DISCN